FAERS Safety Report 4407424-7 (Version None)
Quarter: 2004Q3

REPORT INFORMATION
  Report Type: 
  Country: None (occurrence: None)
  Receive Date: 20040721
  Receipt Date: 20040708
  Transmission Date: 20050211
  Serious: Yes (Hospitalization)
  Sender: FDA-Public Use
  Company Number: 2004046354

PATIENT
  Sex: Male

DRUGS (3)
  1. ZELDOX [Suspect]
     Indication: SCHIZOPHRENIA
     Dosage: 80 MG (1 IN 1 D)
  2. PERAZINE (PERAZINE) [Suspect]
     Indication: SCHIZOPHRENIA
  3. FLUPHENAZINE [Suspect]
     Indication: SCHIZOPHRENIA

REACTIONS (1)
  - NEUROLEPTIC MALIGNANT SYNDROME [None]
